FAERS Safety Report 12421355 (Version 2)
Quarter: 2016Q3

REPORT INFORMATION
  Report Type: Spontaneous
  Country: US (occurrence: US)
  Receive Date: 20160531
  Receipt Date: 20160714
  Transmission Date: 20161109
  Serious: Yes (Hospitalization)
  Sender: FDA-Public Use
  Company Number: US-VERTEX PHARMACEUTICALS-2016-003422

PATIENT
  Age: 29 Year
  Sex: Female

DRUGS (4)
  1. PULMICORT TURBUHALER [Concomitant]
     Active Substance: BUDESONIDE
     Dosage: 180 ?G, UNK
  2. NOVOLOG [Concomitant]
     Active Substance: INSULIN ASPART
  3. PREDNISONE. [Concomitant]
     Active Substance: PREDNISONE
     Dosage: 10 MG, UNK
  4. ORKAMBI [Suspect]
     Active Substance: IVACAFTOR\LUMACAFTOR
     Indication: CYSTIC FIBROSIS
     Dosage: 400-250 MG, BID
     Route: 048
     Dates: start: 20150729

REACTIONS (1)
  - Infective pulmonary exacerbation of cystic fibrosis [Recovered/Resolved]

NARRATIVE: CASE EVENT DATE: 20160516
